FAERS Safety Report 15727737 (Version 1)
Quarter: 2018Q4

REPORT INFORMATION
  Report Type: Spontaneous
  Country: US (occurrence: US)
  Receive Date: 20181217
  Receipt Date: 20181217
  Transmission Date: 20190205
  Serious: No
  Sender: FDA-Public Use
  Company Number: US-PFIZER INC-2018511030

PATIENT
  Age: 65 Year
  Sex: Female
  Weight: 90.72 kg

DRUGS (1)
  1. LEVOTHYROXINE SODIUM. [Suspect]
     Active Substance: LEVOTHYROXINE SODIUM
     Dosage: 137 UG, DAILY
     Route: 048

REACTIONS (1)
  - Thyroid disorder [Unknown]
